FAERS Safety Report 22219400 (Version 1)
Quarter: 2023Q2

REPORT INFORMATION
  Report Type: Report from Study
  Country: US (occurrence: US)
  Receive Date: 20230417
  Receipt Date: 20230417
  Transmission Date: 20230722
  Serious: Yes (Hospitalization)
  Sender: FDA-Public Use
  Company Number: US-ZENPEP LLC-2023AIMT00333

PATIENT

DRUGS (2)
  1. ZENPEP [Suspect]
     Active Substance: PANCRELIPASE AMYLASE\PANCRELIPASE LIPASE\PANCRELIPASE PROTEASE
     Indication: Gastrooesophageal reflux disease
     Dosage: 3000 USP UNITS
     Route: 048
  2. ZENPEP [Suspect]
     Active Substance: PANCRELIPASE AMYLASE\PANCRELIPASE LIPASE\PANCRELIPASE PROTEASE
     Dosage: 3000 USP UNITS, ONCE, LAST DOSE PRIOR EVENT
     Route: 048

REACTIONS (2)
  - Heart valve incompetence [Not Recovered/Not Resolved]
  - Off label use [Not Recovered/Not Resolved]
